FAERS Safety Report 23530480 (Version 1)
Quarter: 2024Q1

REPORT INFORMATION
  Report Type: Spontaneous
  Country: JP (occurrence: JP)
  Receive Date: 20240216
  Receipt Date: 20240216
  Transmission Date: 20240410
  Serious: Yes (Other)
  Sender: FDA-Public Use
  Company Number: JP-HEXAL-SDZ2023JP066018AA

PATIENT
  Age: 75 Year
  Sex: Female

DRUGS (2)
  1. ANASTROZOLE [Suspect]
     Active Substance: ANASTROZOLE
     Indication: Hormone therapy
     Dosage: UNK
     Route: 048
  2. ELDECALCITOL [Concomitant]
     Active Substance: ELDECALCITOL
     Indication: Osteoporosis prophylaxis
     Dosage: UNK
     Route: 048

REACTIONS (3)
  - Conductive deafness [Recovering/Resolving]
  - Osteolysis [Unknown]
  - Bone density decreased [Recovering/Resolving]
